FAERS Safety Report 9669971 (Version 2)
Quarter: 2014Q1

REPORT INFORMATION
  Report Type: Spontaneous
  Country: US (occurrence: US)
  Receive Date: 20131105
  Receipt Date: 20140207
  Transmission Date: 20141002
  Serious: No
  Sender: FDA-Public Use
  Company Number: US-009507513-1310USA014558

PATIENT
  Age: 80 Year
  Sex: Female
  Weight: 74.83 kg

DRUGS (1)
  1. OXYTROL FOR WOMEN [Suspect]
     Indication: URINARY INCONTINENCE
     Dosage: 1 DF, Q4D
     Route: 062
     Dates: start: 20131016, end: 201310

REACTIONS (3)
  - Skin irritation [Recovered/Resolved]
  - Pruritus [Recovered/Resolved]
  - Rash [Recovered/Resolved]
